FAERS Safety Report 7965914-4 (Version None)
Quarter: 2011Q4

REPORT INFORMATION
  Report Type: 
  Country: None (occurrence: None)
  Receive Date: 20111208
  Receipt Date: 20111128
  Transmission Date: 20120403
  Serious: Yes (Hospitalization)
  Sender: FDA-Public Use
  Company Number: FR-GLAXOSMITHKLINE-B0765448A

PATIENT
  Age: 44 Year
  Sex: Male

DRUGS (7)
  1. ZOVIRAX [Suspect]
     Indication: PRODUCT USED FOR UNKNOWN INDICATION
     Dosage: 1.8G PER DAY
     Route: 065
     Dates: start: 20110401, end: 20110405
  2. LINEZOLIDE [Concomitant]
     Dosage: 1.2G PER DAY
     Dates: start: 20110401, end: 20110406
  3. CIPROFLOXACIN [Concomitant]
     Dosage: 800MG PER DAY
     Dates: start: 20110401
  4. PHENOBARBITAL TAB [Concomitant]
  5. ALEPSAL [Concomitant]
     Indication: EPILEPSY
  6. PIPERACILLIN AND TAZOBACTAM [Concomitant]
     Dosage: 12G PER DAY
     Route: 042
     Dates: start: 20110401, end: 20110406
  7. DEPAKENE [Concomitant]
     Indication: EPILEPSY

REACTIONS (1)
  - RENAL TUBULAR DISORDER [None]
